FAERS Safety Report 19409969 (Version 1)
Quarter: 2021Q2

REPORT INFORMATION
  Report Type: Spontaneous
  Country: US (occurrence: US)
  Receive Date: 20210614
  Receipt Date: 20210614
  Transmission Date: 20210717
  Serious: Yes (Hospitalization, Other)
  Sender: FDA-Public Use
  Company Number: US-SA-2021SA193972

PATIENT
  Age: 64 Year
  Sex: Female

DRUGS (35)
  1. DUPIXENT [Suspect]
     Active Substance: DUPILUMAB
     Indication: CONGENITAL HYPOGAMMAGLOBULINAEMIA
     Dosage: 300 MG, QOW
     Route: 058
  2. DUPIXENT [Suspect]
     Active Substance: DUPILUMAB
     Indication: IMMUNODEFICIENCY
  3. QUETIAPINE FUMARATE. [Concomitant]
     Active Substance: QUETIAPINE FUMARATE
  4. MELOXICAM. [Concomitant]
     Active Substance: MELOXICAM
  5. BUPROPION HCL [Concomitant]
     Active Substance: BUPROPION HYDROCHLORIDE
  6. CONCERTA [Concomitant]
     Active Substance: METHYLPHENIDATE HYDROCHLORIDE
     Dosage: ER 24
  7. PROBIOTIC 10 [Concomitant]
     Active Substance: DIETARY SUPPLEMENT\PROBIOTICS
  8. DUPIXENT [Suspect]
     Active Substance: DUPILUMAB
     Indication: ASTHMA
  9. EPINEPHRINE. [Concomitant]
     Active Substance: EPINEPHRINE
     Dosage: AUTO?INJECTOR
  10. METOPROLOL TARTRATE. [Concomitant]
     Active Substance: METOPROLOL TARTRATE
  11. NYSTATIN. [Concomitant]
     Active Substance: NYSTATIN
  12. ADVAIR HFA [Concomitant]
     Active Substance: FLUTICASONE PROPIONATE\SALMETEROL XINAFOATE
     Dosage: 2 MG
  13. DUPIXENT [Suspect]
     Active Substance: DUPILUMAB
     Indication: CHRONIC OBSTRUCTIVE PULMONARY DISEASE
  14. CUVITRU [Concomitant]
     Active Substance: HUMAN IMMUNOGLOBULIN G
  15. CLONIDINE HCL [Concomitant]
     Active Substance: CLONIDINE HYDROCHLORIDE
  16. ALPRAZOLAM. [Concomitant]
     Active Substance: ALPRAZOLAM
  17. SPIRIVA [Concomitant]
     Active Substance: TIOTROPIUM BROMIDE MONOHYDRATE
  18. FERROUS SULFATE. [Concomitant]
     Active Substance: FERROUS SULFATE
  19. THEOPHYLLINE [Concomitant]
     Active Substance: THEOPHYLLINE ANHYDROUS
     Dosage: 400 MG TAB ER 24H
  20. SYNTHROID [Concomitant]
     Active Substance: LEVOTHYROXINE SODIUM
  21. VITAMIN E NOS [Concomitant]
     Active Substance: .ALPHA.-TOCOPHEROL
  22. FISH OIL [Concomitant]
     Active Substance: FISH OIL
  23. LASIX [Concomitant]
     Active Substance: FUROSEMIDE
  24. PERCOCET [Concomitant]
     Active Substance: ACETAMINOPHEN\OXYCODONE HYDROCHLORIDE
  25. POTASSIUM CHLORIDE. [Concomitant]
     Active Substance: POTASSIUM CHLORIDE
  26. DALIRESP [Concomitant]
     Active Substance: ROFLUMILAST
  27. DIPHENHYDRAMINE. [Concomitant]
     Active Substance: DIPHENHYDRAMINE
  28. VITAMIN D2 [Concomitant]
     Active Substance: ERGOCALCIFEROL
  29. TIZANIDINE HCL [Concomitant]
     Active Substance: TIZANIDINE HYDROCHLORIDE
  30. DOXYCYCLINE HYCLATE. [Concomitant]
     Active Substance: DOXYCYCLINE HYCLATE
  31. VITAMIN C [Concomitant]
     Active Substance: ASCORBIC ACID
  32. ACETAMINOPHEN. [Concomitant]
     Active Substance: ACETAMINOPHEN
  33. LIDOCAINE. [Concomitant]
     Active Substance: LIDOCAINE
  34. PREDNISONE. [Concomitant]
     Active Substance: PREDNISONE
  35. CALCIUM;MAGNESIUM;VITAMIN D NOS;ZINC [Concomitant]

REACTIONS (3)
  - Urosepsis [Unknown]
  - Product use in unapproved indication [Unknown]
  - Incorrect dose administered [Unknown]

NARRATIVE: CASE EVENT DATE: 20210526
